FAERS Safety Report 9394304 (Version 1)
Quarter: 2013Q3

REPORT INFORMATION
  Report Type: Report from Study
  Country: AU (occurrence: AU)
  Receive Date: 20130711
  Receipt Date: 20130711
  Transmission Date: 20140515
  Serious: Yes (Other)
  Sender: FDA-Public Use
  Company Number: AU-ROCHE-1247048

PATIENT
  Age: 59 Year
  Sex: Male

DRUGS (6)
  1. ACTEMRA [Suspect]
     Indication: RHEUMATOID ARTHRITIS
     Route: 042
     Dates: start: 201211
  2. PREDNISONE [Concomitant]
     Indication: INFLAMMATION
     Dosage: DECREASING DOSE. STARTED 2.5 YEARS AGO
     Route: 048
  3. NEXIUM [Concomitant]
     Indication: HAEMORRHAGE
     Dosage: STARTED 2.5 YEARS AGO
     Route: 048
  4. OXYCONTIN [Concomitant]
     Indication: ANALGESIC THERAPY
     Route: 048
     Dates: start: 201306
  5. ENDONE [Concomitant]
     Indication: ANALGESIC THERAPY
     Route: 048
     Dates: start: 201306
  6. PANADEINE FORTE [Concomitant]

REACTIONS (2)
  - Deep vein thrombosis [Recovered/Resolved]
  - Muscle strain [Recovering/Resolving]
